FAERS Safety Report 23546865 (Version 1)
Quarter: 2024Q1

REPORT INFORMATION
  Report Type: Spontaneous
  Country: US (occurrence: US)
  Receive Date: 20240221
  Receipt Date: 20240221
  Transmission Date: 20240410
  Serious: No
  Sender: FDA-Public Use
  Company Number: US-PADAGIS-2023PAD01629

PATIENT

DRUGS (4)
  1. CLOBETASOL PROPIONATE [Suspect]
     Active Substance: CLOBETASOL PROPIONATE
     Indication: Alopecia areata
     Dosage: UNK
     Route: 061
  2. CLOBETASOL PROPIONATE [Suspect]
     Active Substance: CLOBETASOL PROPIONATE
     Dosage: UNK (SOLUTION)
     Route: 061
  3. MINOXIDIL [Suspect]
     Active Substance: MINOXIDIL
     Indication: Alopecia areata
     Dosage: UNK
     Route: 061
  4. MINOXIDIL [Suspect]
     Active Substance: MINOXIDIL
     Dosage: MINOXIDIL 2% FOAM
     Route: 065

REACTIONS (5)
  - Palpitations [Unknown]
  - Skin irritation [Unknown]
  - Therapy partial responder [Unknown]
  - Product use in unapproved indication [Unknown]
  - Product use issue [Unknown]
